FAERS Safety Report 17293102 (Version 1)
Quarter: 2020Q1

REPORT INFORMATION
  Report Type: Spontaneous
  Country: US (occurrence: US)
  Receive Date: 20200102
  Receipt Date: 20200102
  Transmission Date: 20200409
  Serious: Yes (Other)
  Sender: FDA-Public Use
  Company Number: None

PATIENT
  Age: 85 Year
  Sex: Female
  Weight: 57 kg

DRUGS (1)
  1. DIAZEPAM 10MG/2ML [Suspect]
     Active Substance: DIAZEPAM
     Indication: DIZZINESS
     Route: 042
     Dates: start: 20191226

REACTIONS (3)
  - Bradycardia [None]
  - Oxygen saturation decreased [None]
  - Loss of consciousness [None]

NARRATIVE: CASE EVENT DATE: 20191226
